FAERS Safety Report 24713880 (Version 1)
Quarter: 2024Q4

REPORT INFORMATION
  Report Type: Spontaneous
  Country: US (occurrence: US)
  Receive Date: 20241209
  Receipt Date: 20241209
  Transmission Date: 20250115
  Serious: No
  Sender: REGENERON
  Company Number: US-REGENERON PHARMACEUTICALS, INC.-2024-071337

PATIENT
  Sex: Female

DRUGS (3)
  1. EYLEA [Suspect]
     Active Substance: AFLIBERCEPT
     Indication: Retinal vein occlusion
     Dosage: 2MG, Q4W IN RIGHT EYE, FORMULATION: PFS GERRESHEIMER
     Dates: start: 20231031
  2. EYLEA [Suspect]
     Active Substance: AFLIBERCEPT
     Dosage: 2 MG, EXTENDED TO 12-14 WEEKS IN RIGHT EYE, FORMULATION: PFS GERRESHEIMER
     Dates: end: 20240402
  3. LOSARTAN [Concomitant]
     Active Substance: LOSARTAN
     Indication: Blood pressure increased
     Dosage: 25 MG; PILLS

REACTIONS (8)
  - Balance disorder [Not Recovered/Not Resolved]
  - Headache [Not Recovered/Not Resolved]
  - Nausea [Unknown]
  - Urinary tract infection [Unknown]
  - Chromaturia [Unknown]
  - Injection site discomfort [Unknown]
  - Eye pain [Recovered/Resolved]
  - Wrong technique in product usage process [Unknown]

NARRATIVE: CASE EVENT DATE: 20240402
